FAERS Safety Report 9161247 (Version 1)
Quarter: 2013Q1

REPORT INFORMATION
  Report Type: Spontaneous
  Country: TR (occurrence: TR)
  Receive Date: 20130313
  Receipt Date: 20130313
  Transmission Date: 20140127
  Serious: Yes (Death, Life-Threatening, Hospitalization)
  Sender: FDA-Public Use
  Company Number: TR-GLAXOSMITHKLINE-B0874562A

PATIENT
  Age: 48 Year
  Sex: Female

DRUGS (1)
  1. PAXIL [Suspect]
     Indication: DEPRESSION
     Route: 048
     Dates: start: 20130108, end: 20130108

REACTIONS (17)
  - Anaphylactic reaction [Fatal]
  - Cardiac arrest [Fatal]
  - Rash generalised [Unknown]
  - Pruritus [Recovered/Resolved]
  - Dyspnoea [Unknown]
  - Vomiting [Unknown]
  - Faecal incontinence [Unknown]
  - Loss of consciousness [Unknown]
  - Wheezing [Unknown]
  - Swelling [Unknown]
  - Syncope [Unknown]
  - Cyanosis [Unknown]
  - Cyanosis [Unknown]
  - Hypertension [Unknown]
  - Blood glucose increased [Unknown]
  - Brain oedema [Unknown]
  - Loss of consciousness [Unknown]
